FAERS Safety Report 7258350-X (Version None)
Quarter: 2011Q1

REPORT INFORMATION
  Report Type: 
  Country: None (occurrence: None)
  Receive Date: 20110129
  Receipt Date: 20100715
  Transmission Date: 20110831
  Serious: No
  Sender: FDA-Public Use
  Company Number: US-ABBOTT-10P-163-0658008-00

PATIENT
  Age: 46 Year
  Sex: Female

DRUGS (2)
  1. NEXIUM [Concomitant]
     Indication: GASTROOESOPHAGEAL REFLUX DISEASE
  2. HUMIRA [Suspect]
     Indication: CROHN'S DISEASE
     Dates: start: 20090701, end: 20100604

REACTIONS (4)
  - DIARRHOEA [None]
  - ABDOMINAL PAIN UPPER [None]
  - HEADACHE [None]
  - PAIN [None]
